FAERS Safety Report 16299571 (Version 1)
Quarter: 2019Q2

REPORT INFORMATION
  Report Type: Spontaneous
  Country: US (occurrence: US)
  Receive Date: 20190510
  Receipt Date: 20190510
  Transmission Date: 20190711
  Serious: No
  Sender: FDA-Public Use
  Company Number: US-TEVA-2019-US-1039924

PATIENT
  Sex: Male
  Weight: 90.8 kg

DRUGS (2)
  1. SELEGILINE [Concomitant]
     Active Substance: SELEGILINE
     Dosage: 10 MILLIGRAM DAILY;
     Route: 048
  2. CARBIDOPA 25 MG AND LEVODOPA 250 MG ACTAVIS [Suspect]
     Active Substance: CARBIDOPA\LEVODOPA
     Indication: PARKINSON^S DISEASE
     Dosage: 4 DOSAGE FORMS DAILY; FORM STRENGTH: CARBIDOPA 25 MG/LEVODOPA 250 MG, QID, 1 TABLET 4 TIMES A DAY
     Route: 048
     Dates: start: 2018

REACTIONS (2)
  - Middle insomnia [Unknown]
  - Inappropriate schedule of product administration [Unknown]
